FAERS Safety Report 4338247-5 (Version None)
Quarter: 2004Q2

REPORT INFORMATION
  Report Type: 
  Country: None (occurrence: None)
  Receive Date: 20040409
  Receipt Date: 20040329
  Transmission Date: 20050107
  Serious: No
  Sender: FDA-Public Use
  Company Number: 2004CG00561

PATIENT
  Age: 72 Year
  Sex: Female
  Weight: 64.5 kg

DRUGS (5)
  1. ATACAND [Suspect]
     Indication: HYPERTENSION
     Dosage: 8 MG DAILY PO
     Route: 048
     Dates: start: 20040106, end: 20040111
  2. GLUCOPHAGE [Concomitant]
  3. DAONIL [Concomitant]
  4. ELISOR [Concomitant]
  5. DIOSMINE [Concomitant]

REACTIONS (4)
  - ECZEMA [None]
  - LARYNGEAL DISCOMFORT [None]
  - PRURIGO [None]
  - RASH GENERALISED [None]
